FAERS Safety Report 5693712-3 (Version None)
Quarter: 2008Q2

REPORT INFORMATION
  Report Type: 
  Country: None (occurrence: None)
  Receive Date: 20080403
  Receipt Date: 20080327
  Transmission Date: 20081010
  Serious: Yes (Other)
  Sender: FDA-Public Use
  Company Number: PHHY2008AU03847

PATIENT
  Age: 20 Year
  Sex: Male

DRUGS (1)
  1. RITALIN LA [Suspect]
     Indication: ATTENTION DEFICIT/HYPERACTIVITY DISORDER
     Dosage: 20 MG, AM
     Dates: start: 20071201

REACTIONS (4)
  - ANGER [None]
  - DEPRESSION [None]
  - FEELING ABNORMAL [None]
  - INTENTIONAL SELF-INJURY [None]
